FAERS Safety Report 4633056-1 (Version None)
Quarter: 2005Q2

REPORT INFORMATION
  Report Type: 
  Country: None (occurrence: None)
  Receive Date: 20050411
  Receipt Date: 20050411
  Transmission Date: 20051028
  Serious: No
  Sender: FDA-Public Use
  Company Number: None

PATIENT
  Sex: Male
  Weight: 90.7194 kg

DRUGS (1)
  1. BEXTRA [Suspect]
     Indication: ARTHRITIS
     Dosage: ONE PER DAY
     Dates: start: 20040501, end: 20050408

REACTIONS (6)
  - CARDIAC MURMUR [None]
  - FLUID RETENTION [None]
  - PAIN [None]
  - PIGMENTED NAEVUS [None]
  - RASH [None]
  - SKIN LESION [None]
